FAERS Safety Report 18619008 (Version 1)
Quarter: 2020Q4

REPORT INFORMATION
  Report Type: Spontaneous
  Country: US (occurrence: US)
  Receive Date: 20201215
  Receipt Date: 20201215
  Transmission Date: 20210114
  Serious: Yes (Hospitalization)
  Sender: FDA-Public Use
  Company Number: US-VERTEX PHARMACEUTICALS-2020-024610

PATIENT
  Sex: Male
  Weight: 93 kg

DRUGS (1)
  1. TRIKAFTA [Suspect]
     Active Substance: ELEXACAFTOR\IVACAFTOR\TEZACAFTOR
     Indication: CYSTIC FIBROSIS
     Dosage: (100 MG ELEXACAFTOR/50 GM TEZACAFTOR/75 GM IVACAFTOR; 150 MG IVACAFTOR) BID
     Route: 048

REACTIONS (1)
  - Hospitalisation [Unknown]
